FAERS Safety Report 8395549-3 (Version None)
Quarter: 2012Q2

REPORT INFORMATION
  Report Type: 
  Country: None (occurrence: None)
  Receive Date: 20120530
  Receipt Date: 20110721
  Transmission Date: 20120825
  Serious: No
  Sender: FDA-Public Use
  Company Number: US-GLAXOSMITHKLINE-A0937566A

PATIENT
  Age: 26 Year
  Sex: Male

DRUGS (2)
  1. VENTOLIN [Suspect]
     Indication: ASTHMA
     Dosage: 2PUFF AS REQUIRED
     Route: 055
     Dates: start: 20110721
  2. AMOXICILLIN [Concomitant]

REACTIONS (2)
  - OROPHARYNGEAL PAIN [None]
  - THROAT IRRITATION [None]
